FAERS Safety Report 13828032 (Version 2)
Quarter: 2017Q3

REPORT INFORMATION
  Report Type: Spontaneous
  Country: IT (occurrence: IT)
  Receive Date: 20170803
  Receipt Date: 20170925
  Transmission Date: 20171127
  Serious: Yes (Hospitalization)
  Sender: FDA-Public Use
  Company Number: IT-ROCHE-1971215

PATIENT
  Age: 8 Month
  Sex: Male
  Weight: 9 kg

DRUGS (4)
  1. MICROPAM [Concomitant]
     Active Substance: DIAZEPAM
     Dosage: 5 MG/2.5 ML 4 SINGLE-DOSE CONTAIN (ROUTE -RECTAL )
     Route: 065
  2. DEPAKIN [Concomitant]
     Active Substance: VALPROATE SODIUM
  3. RIVOTRIL [Suspect]
     Active Substance: CLONAZEPAM
     Indication: PRODUCT USED FOR UNKNOWN INDICATION
     Dosage: 2.5 MG/ML ORAL DROPS, SOLUTION^ 10 ML BOTTLE
     Route: 048
     Dates: start: 20170101, end: 20170714
  4. PHENOBARBITAL. [Suspect]
     Active Substance: PHENOBARBITAL
     Indication: EPILEPSY
     Route: 048
     Dates: start: 20170101, end: 20170714

REACTIONS (2)
  - Drug ineffective [Unknown]
  - Tonic clonic movements [Recovered/Resolved]

NARRATIVE: CASE EVENT DATE: 20170714
